FAERS Safety Report 16477008 (Version 2)
Quarter: 2019Q3

REPORT INFORMATION
  Report Type: Spontaneous
  Country: US (occurrence: US)
  Receive Date: 20190626
  Receipt Date: 20190702
  Transmission Date: 20191004
  Serious: No
  Sender: FDA-Public Use
  Company Number: US-AMGEN INC.-USASP2019100881

PATIENT
  Sex: Female

DRUGS (1)
  1. AIMOVIG [Suspect]
     Active Substance: ERENUMAB-AOOE
     Indication: MIGRAINE
     Dosage: 140 MILLIGRAM, UNK
     Route: 065
     Dates: start: 201806, end: 20190617

REACTIONS (4)
  - Migraine [Unknown]
  - Rash pruritic [Unknown]
  - Drug specific antibody present [Unknown]
  - Injection site reaction [Unknown]

NARRATIVE: CASE EVENT DATE: 201902
